FAERS Safety Report 4435308-7 (Version None)
Quarter: 2004Q3

REPORT INFORMATION
  Report Type: 
  Country: None (occurrence: None)
  Receive Date: 20040827
  Receipt Date: 20040729
  Transmission Date: 20050211
  Serious: Yes (Death, Hospitalization, Other)
  Sender: FDA-Public Use
  Company Number: PHNU2004DE02677

PATIENT
  Age: 50 Year
  Sex: Male
  Weight: 104 kg

DRUGS (6)
  1. TEGRETOL-XR [Suspect]
     Indication: EPILEPSY
     Dosage: 800 MG, BID
     Route: 048
     Dates: start: 19751101
  2. TEGRETOL-XR [Suspect]
     Dosage: 1600 MG/D (400-400-800)
     Route: 048
     Dates: start: 19910101
  3. TEGRETOL-XR [Suspect]
     Dosage: 800 MG, BID
     Route: 048
     Dates: start: 19970601, end: 20040701
  4. TOPAMAX [Concomitant]
     Indication: EPILEPSY
     Dosage: 75 MG, BID
     Dates: start: 20000101
  5. PRES ^BOEHRINGER INGELHEIM^ [Concomitant]
     Dosage: 5 MG, BID
     Dates: start: 20040701
  6. INNOHEP [Suspect]
     Indication: ATRIAL FLUTTER
     Dosage: DOSAGE WEIGHT-ADAPTED
     Dates: start: 20040701

REACTIONS (8)
  - AORTIC ANEURYSM [None]
  - ATRIAL FLUTTER [None]
  - ATRIOVENTRICULAR BLOCK FIRST DEGREE [None]
  - BRADYARRHYTHMIA [None]
  - CEREBRAL HAEMORRHAGE [None]
  - OVERDOSE [None]
  - PUPIL FIXED [None]
  - SOMNOLENCE [None]
